FAERS Safety Report 16707173 (Version 1)
Quarter: 2019Q3

REPORT INFORMATION
  Report Type: Spontaneous
  Country: DE (occurrence: DE)
  Receive Date: 20190815
  Receipt Date: 20190815
  Transmission Date: 20191004
  Serious: Yes (Hospitalization)
  Sender: FDA-Public Use
  Company Number: PHHY2019DE188675

PATIENT
  Sex: Male
  Weight: 83 kg

DRUGS (4)
  1. REVLIMID [Suspect]
     Active Substance: LENALIDOMIDE
     Dosage: 7 MG, UNK
     Route: 048
  2. VERGENTAN [Concomitant]
     Active Substance: ALIZAPRIDE HYDROCHLORIDE
     Indication: PROPHYLAXIS
     Dosage: 100 MG, QD
     Route: 041
     Dates: start: 20171103, end: 20180327
  3. DEXAMETHASONE. [Suspect]
     Active Substance: DEXAMETHASONE
     Indication: PLASMA CELL MYELOMA
     Dosage: 12 MG, UNK
     Route: 065
  4. REVLIMID [Suspect]
     Active Substance: LENALIDOMIDE
     Indication: PLASMA CELL MYELOMA
     Dosage: 7 MG, UNK
     Route: 048

REACTIONS (3)
  - General physical health deterioration [Recovered/Resolved]
  - Constipation [Recovered/Resolved]
  - Ageusia [Recovered/Resolved]

NARRATIVE: CASE EVENT DATE: 20171206
